FAERS Safety Report 8321128-X (Version None)
Quarter: 2012Q2

REPORT INFORMATION
  Report Type: 
  Country: None (occurrence: None)
  Receive Date: 20120430
  Receipt Date: 20120419
  Transmission Date: 20120825
  Serious: Yes (Hospitalization, Other)
  Sender: FDA-Public Use
  Company Number: US-JNJFOC-20101007444

PATIENT
  Sex: Female

DRUGS (5)
  1. SOLU-MEDROL [Suspect]
     Indication: ASTHMA
     Route: 042
  2. LEVAQUIN [Suspect]
     Indication: INFECTION
     Route: 048
     Dates: start: 20091101
  3. PREDNISONE [Suspect]
     Indication: PRODUCT USED FOR UNKNOWN INDICATION
     Route: 048
  4. LEVAQUIN [Suspect]
     Indication: ASTHMA
     Route: 042
  5. BUDESONIDE [Suspect]
     Indication: ASTHMA
     Route: 055

REACTIONS (5)
  - DEPRESSION [None]
  - TENDON RUPTURE [None]
  - TENDONITIS [None]
  - ANXIETY [None]
  - TRIGGER FINGER [None]
